FAERS Safety Report 5715715-2 (Version None)
Quarter: 2008Q2

REPORT INFORMATION
  Report Type: 
  Country: None (occurrence: None)
  Receive Date: 20080422
  Receipt Date: 20080409
  Transmission Date: 20081010
  Serious: Yes (Death)
  Sender: FDA-Public Use
  Company Number: 2008028848

PATIENT
  Age: 56 Year
  Sex: Male

DRUGS (7)
  1. FRAGMIN [Suspect]
     Indication: PROPHYLAXIS
     Dosage: 5000 I.U. (5000 I.U., DAILY: EVERY DAY), SUBCUTANEOUS
     Route: 058
     Dates: start: 20080303, end: 20080311
  2. INFESOL 40 (AMINO ACIDS NOS, SORBITOL) [Concomitant]
  3. GLUCOSE (GLUCOSE) [Concomitant]
  4. CIPROFLOXACIN [Concomitant]
  5. METRONIDAZOLE [Concomitant]
  6. FRAXIPARIN (HEPARIN-FRACTION, CALCIUM SALT) [Concomitant]
  7. KETONAL (KETOPROFEN) [Concomitant]

REACTIONS (3)
  - METASTASES TO LYMPH NODES [None]
  - METASTASES TO PERITONEUM [None]
  - POST PROCEDURAL PULMONARY EMBOLISM [None]
